FAERS Safety Report 11087736 (Version 2)
Quarter: 2015Q2

REPORT INFORMATION
  Report Type: Report from Study
  Country: US (occurrence: US)
  Receive Date: 20150504
  Receipt Date: 20150619
  Transmission Date: 20150821
  Serious: Yes (Hospitalization, Other)
  Sender: FDA-Public Use
  Company Number: US-UCBSA-2015012829

PATIENT
  Age: 15 Year
  Sex: Male
  Weight: 48.4 kg

DRUGS (8)
  1. LACOSAMIDE EP [Suspect]
     Active Substance: LACOSAMIDE
     Dosage: 25 ML, 2X/DAY (BID)
     Route: 048
     Dates: start: 20150419, end: 20150520
  2. DIASTAT [Concomitant]
     Active Substance: DIAZEPAM
     Indication: SEIZURE
     Dosage: 12.5 MG, AS NEEDED (PRN) WHEN SEIZURES }5MINS
  3. LEVETIRACETAM. [Concomitant]
     Active Substance: LEVETIRACETAM
     Indication: SEIZURE
     Dosage: 1000 MG, ONCE DAILY (QD)
     Dates: start: 20140120
  4. VALPROIC ACID. [Concomitant]
     Active Substance: VALPROIC ACID
     Indication: SEIZURE
     Dosage: 250MG IN AM AND 500MG PM, 2X/DAY (BID)
     Dates: start: 20141114
  5. LACOSAMIDE EP [Suspect]
     Active Substance: LACOSAMIDE
     Indication: EPILEPSY
     Dosage: 19 ML, 2X/DAY (BID) (EVERY 12 HOURS); ROUTE: G-TUBE
     Dates: start: 20150108, end: 20150418
  6. CLOBAZAM [Concomitant]
     Active Substance: CLOBAZAM
     Dosage: 20MG QAM AND 60MG QPM, 2X/DAY (BID)
     Dates: start: 20150521
  7. LEVOCARNITINE. [Concomitant]
     Active Substance: LEVOCARNITINE
     Indication: PRODUCT USED FOR UNKNOWN INDICATION
     Dosage: 500 MG, 3X/DAY (TID)
  8. CLOBAZAM [Concomitant]
     Active Substance: CLOBAZAM
     Indication: SEIZURE
     Dosage: 32.5 MG, 2X/DAY (BID)

REACTIONS (1)
  - Status epilepticus [Recovered/Resolved]

NARRATIVE: CASE EVENT DATE: 20150419
